FAERS Safety Report 6011435-8 (Version None)
Quarter: 2008Q4

REPORT INFORMATION
  Report Type: 
  Country: None (occurrence: None)
  Receive Date: 20081218
  Receipt Date: 20050609
  Transmission Date: 20090506
  Serious: Yes (Death, Hospitalization)
  Sender: FDA-Public Use
  Company Number: FR-ROCHE-421779

PATIENT
  Sex: Female

DRUGS (5)
  1. CAPECITABINE [Suspect]
     Indication: BREAST CANCER
     Dosage: DOSE REPORTED AS 3500, UNITS NOT PROVIDED
     Route: 048
     Dates: start: 20050511, end: 20050517
  2. IXABEPILONE [Suspect]
     Indication: BREAST CANCER
     Dosage: FREQUENCY REPORTED AS ONCE PER ONE CYCLE
     Route: 042
     Dates: start: 20050511, end: 20050511
  3. SOLUPRED [Concomitant]
     Dates: start: 20050511
  4. VOGALENE [Concomitant]
     Dates: start: 20050511
  5. MOPRAL [Concomitant]
     Dates: start: 20050511

REACTIONS (3)
  - DEATH [None]
  - DIARRHOEA [None]
  - NAUSEA [None]
